FAERS Safety Report 11220694 (Version 2)
Quarter: 2015Q3

REPORT INFORMATION
  Report Type: Spontaneous
  Country: US (occurrence: US)
  Receive Date: 20150626
  Receipt Date: 20150828
  Transmission Date: 20151125
  Serious: No
  Sender: FDA-Public Use
  Company Number: US-009507513-1506USA011300

PATIENT
  Sex: Female

DRUGS (1)
  1. MEVACOR [Suspect]
     Active Substance: LOVASTATIN
     Dosage: UNK
     Route: 048
     Dates: start: 2005

REACTIONS (2)
  - Drug hypersensitivity [Unknown]
  - Myalgia [Unknown]
